FAERS Safety Report 8765163 (Version 3)
Quarter: 2013Q3

REPORT INFORMATION
  Report Type: Report from Study
  Country: JP (occurrence: JP)
  Receive Date: 20120903
  Receipt Date: 20130710
  Transmission Date: 20140515
  Serious: Yes (Death, Hospitalization)
  Sender: FDA-Public Use
  Company Number: JP-SHIRE-ALL1-2012-04094

PATIENT
  Age: 60 Year
  Sex: Male

DRUGS (21)
  1. 405 (LANTHANUM CARBONATE) [Suspect]
     Indication: HYPERPHOSPHATAEMIA
     Dosage: 500 MG, UNKNOWN (IMMEDIATELY AFTER MEALS)
     Route: 048
     Dates: start: 20090715
  2. BAYASPIRIN [Suspect]
     Indication: ANGINA PECTORIS
     Dosage: 100 MG, 1X/DAY:QD
     Route: 048
     Dates: start: 20080702
  3. REGPARA [Suspect]
     Indication: HYPERPARATHYROIDISM SECONDARY
     Dosage: 25 MG, 1X/DAY:QD
     Route: 048
     Dates: start: 20081110, end: 20110123
  4. REGPARA [Suspect]
     Dosage: 37.5 MG, 1X/DAY:QD
     Route: 048
     Dates: start: 20110124
  5. PHOSBLOCK [Concomitant]
     Indication: HYPERPHOSPHATAEMIA
     Dosage: 2000 MG, 1X/DAY:QD
     Route: 048
     Dates: start: 20090130
  6. PHOSBLOCK [Concomitant]
     Dosage: 1000 MG, 1X/DAY:QD
     Route: 048
     Dates: start: 201109
  7. PHOSBLOCK [Concomitant]
     Dosage: UNK, UNKNOWN
     Route: 048
     Dates: end: 20111221
  8. ALLOPURINOL [Concomitant]
     Indication: HYPERURICAEMIA
     Dosage: 100 MG, 1X/DAY:QD
     Route: 065
     Dates: start: 20090728, end: 20091210
  9. CALCIUM POLYSTYRENE SULFONATE [Concomitant]
     Indication: HYPERKALAEMIA
     Dosage: 25 G, 1X/DAY:QD
     Route: 065
     Dates: start: 20101227, end: 20110124
  10. OXAROL [Concomitant]
     Indication: PRODUCT USED FOR UNKNOWN INDICATION
     Dosage: 22.5 ?G, 1X/WEEK
     Route: 042
     Dates: start: 20090107, end: 20091013
  11. OXAROL [Concomitant]
     Dosage: 45 ?G, 1X/WEEK
     Route: 042
     Dates: start: 20091014, end: 20100119
  12. OXAROL [Concomitant]
     Dosage: 10 ?G, 1X/WEEK
     Route: 042
     Dates: start: 20100120
  13. OXAROL [Concomitant]
     Dosage: 2.5 ?G, 1X/WEEK
     Route: 042
     Dates: start: 20110126
  14. ADALAT CR [Concomitant]
     Indication: HYPERTENSION
     Dosage: 40.0 MG, UNKNOWN
     Route: 048
     Dates: start: 20050611
  15. NITORBIN [Concomitant]
     Indication: ANGINA PECTORIS
     Dosage: 10.0 MG, UNKNOWN
     Route: 048
     Dates: start: 20070702
  16. PURSENNID                          /00142207/ [Concomitant]
     Indication: CONSTIPATION
     Dosage: 288.0 MG, 1X/WEEK(ON DAY OF DIALYSIS)
     Route: 048
     Dates: start: 20070213
  17. GASTER                             /00706001/ [Concomitant]
     Indication: GASTRITIS
     Dosage: 10 MG, UNKNOWN
     Route: 048
     Dates: start: 20080702
  18. CRESTOR [Concomitant]
     Indication: PRODUCT USED FOR UNKNOWN INDICATION
     Dosage: 2.5 MG, UNKNOWN
     Route: 048
     Dates: start: 20080908
  19. ESPO [Concomitant]
     Indication: PRODUCT USED FOR UNKNOWN INDICATION
     Dosage: 1500 IU, UNKNOWN
     Route: 042
     Dates: start: 20070702
  20. NESP [Concomitant]
     Indication: PRODUCT USED FOR UNKNOWN INDICATION
     Dosage: 30 ?G, UNKNOWN
     Route: 042
     Dates: start: 20071101
  21. NESP [Concomitant]
     Dosage: 10 ?G, UNKNOWN
     Route: 042
     Dates: start: 20100106

REACTIONS (1)
  - Subarachnoid haemorrhage [Fatal]
